FAERS Safety Report 4609509-9 (Version None)
Quarter: 2005Q1

REPORT INFORMATION
  Report Type: 
  Country: None (occurrence: None)
  Receive Date: 20050314
  Receipt Date: 20050314
  Transmission Date: 20050727
  Serious: Yes (Hospitalization)
  Sender: FDA-Public Use
  Company Number: None

PATIENT
  Age: 83 Year
  Sex: Male

DRUGS (8)
  1. LISINOPRIL [Suspect]
     Indication: HYPERTENSION
     Dosage: 40 MG QD
     Dates: start: 20030301
  2. TERAZOSIN [Suspect]
     Indication: BENIGN PROSTATIC HYPERPLASIA
     Dosage: 5 MG Q HS
     Dates: start: 20000601
  3. METOPROLOL [Suspect]
     Indication: HYPERTENSION
     Dosage: 25 MG BID
     Dates: start: 20031101
  4. AZATHIOPRINE [Concomitant]
  5. PREDNISONE [Concomitant]
  6. PLAVIX [Concomitant]
  7. METOCLOPRAMIDE [Concomitant]
  8. OSCAL [Concomitant]

REACTIONS (1)
  - SYNCOPE [None]
